FAERS Safety Report 21709047 (Version 1)
Quarter: 2022Q4

REPORT INFORMATION
  Report Type: Report from Study
  Country: PR (occurrence: PR)
  Receive Date: 20221210
  Receipt Date: 20221210
  Transmission Date: 20230112
  Serious: No
  Sender: FDA-Public Use
  Company Number: PR-ABBVIE-4231053

PATIENT
  Sex: Female
  Weight: 85.275 kg

DRUGS (1)
  1. VENCLEXTA [Suspect]
     Active Substance: VENETOCLAX
     Indication: Chronic lymphocytic leukaemia
     Route: 048
     Dates: start: 20221024

REACTIONS (3)
  - Abdominal discomfort [Unknown]
  - Taste disorder [Unknown]
  - Decreased appetite [Unknown]
